FAERS Safety Report 7812493 (Version 4)
Quarter: 2014Q2

REPORT INFORMATION
  Report Type: Report from Study
  Country: FR (occurrence: FR)
  Receive Date: 20110215
  Receipt Date: 20140507
  Transmission Date: 20141212
  Serious: Yes (Hospitalization)
  Sender: FDA-Public Use
  Company Number: FR-JNJFOC-20110202008

PATIENT
  Age: 61 Year
  Sex: Male
  Weight: 87 kg

DRUGS (11)
  1. REMICADE [Suspect]
     Indication: COLITIS ULCERATIVE
     Dosage: 760 MG
     Route: 042
  2. REMICADE [Suspect]
     Indication: COLITIS ULCERATIVE
     Dosage: 760 MG
     Route: 042
     Dates: start: 20101026
  3. TRIATEC [Concomitant]
  4. TEMERIT [Concomitant]
  5. TAHOR [Concomitant]
  6. PLAVIX [Concomitant]
  7. ROVALCYTE [Concomitant]
  8. PERFALGAN [Concomitant]
  9. MORPHINE [Concomitant]
     Dosage: 30 MG/24 H AND ADDITIONAL DOSE IF NEEDED 3 MG
  10. TAZOCILLINE [Concomitant]
  11. TRIFLUCAN [Concomitant]

REACTIONS (2)
  - Ileocolostomy [Recovered/Resolved]
  - Colitis ulcerative [Recovered/Resolved]
